FAERS Safety Report 5893801-4 (Version None)
Quarter: 2008Q3

REPORT INFORMATION
  Report Type: 
  Country: None (occurrence: None)
  Receive Date: 20080923
  Receipt Date: 20080910
  Transmission Date: 20090109
  Serious: Yes (Life-Threatening, Hospitalization, Other)
  Sender: FDA-Public Use
  Company Number: US-ELI_LILLY_AND_COMPANY-US200809002696

PATIENT
  Sex: Female

DRUGS (8)
  1. BYETTA [Suspect]
     Dosage: 10 UG, UNKNOWN
     Dates: start: 20060401, end: 20080502
  2. METFORMIN HCL [Concomitant]
     Indication: DIABETES MELLITUS
     Dosage: 850 MG, 2/D
     Dates: start: 20040101, end: 20080501
  3. GLIMEPIRIDE [Concomitant]
     Indication: DIABETES MELLITUS
     Dosage: 2.5 MG, UNK
     Dates: start: 20040101, end: 20080501
  4. VYTORIN [Concomitant]
     Indication: BLOOD CHOLESTEROL
     Dosage: UNK, UNKNOWN
  5. TRAZODONE HCL [Concomitant]
     Dosage: 100 MG, EACH EVENING
  6. LEVOXYL [Concomitant]
     Dosage: 0.112 MG, UNKNOWN
  7. TRICOR [Concomitant]
     Dosage: 145 MG, UNKNOWN
  8. NORVASC [Concomitant]
     Dosage: 5 MG, EACH MORNING

REACTIONS (4)
  - BLOOD GLUCOSE ABNORMAL [None]
  - CHOLECYSTECTOMY [None]
  - PANCREATITIS [None]
  - TRACHEAL INJURY [None]
